FAERS Safety Report 7276001-5 (Version None)
Quarter: 2011Q1

REPORT INFORMATION
  Report Type: 
  Country: None (occurrence: None)
  Receive Date: 20110204
  Receipt Date: 20110126
  Transmission Date: 20110831
  Serious: Yes (Other)
  Sender: FDA-Public Use
  Company Number: B0692010A

PATIENT
  Age: 61 Year
  Sex: Female

DRUGS (3)
  1. VIREAD [Concomitant]
     Indication: HIV INFECTION
     Route: 048
  2. CELSENTRI [Suspect]
     Indication: HIV INFECTION
     Dosage: 300MG TWICE PER DAY
     Route: 048
     Dates: start: 20100601
  3. SERETIDE [Suspect]
     Route: 055

REACTIONS (3)
  - CUSHINGOID [None]
  - HYPOTHYROIDISM [None]
  - WEIGHT INCREASED [None]
